FAERS Safety Report 5203470-4 (Version None)
Quarter: 2007Q1

REPORT INFORMATION
  Report Type: 
  Country: None (occurrence: None)
  Receive Date: 20070110
  Receipt Date: 20070104
  Transmission Date: 20070707
  Serious: Yes (Hospitalization)
  Sender: FDA-Public Use
  Company Number: FR-ROCHE-477011

PATIENT
  Age: 49 Year
  Sex: Male

DRUGS (1)
  1. NAPROSYN [Suspect]
     Indication: ARTHROPATHY
     Route: 048
     Dates: start: 20061113, end: 20061115

REACTIONS (3)
  - ABDOMINAL PAIN [None]
  - HAEMOGLOBIN DECREASED [None]
  - RECTAL HAEMORRHAGE [None]
